FAERS Safety Report 7321000-8 (Version None)
Quarter: 2011Q1

REPORT INFORMATION
  Report Type: 
  Country: None (occurrence: None)
  Receive Date: 20110228
  Receipt Date: 20110224
  Transmission Date: 20110831
  Serious: Yes (Death)
  Sender: FDA-Public Use
  Company Number: US-ASTRAZENECA-2011SE10422

PATIENT
  Age: 33 Year
  Sex: Female

DRUGS (6)
  1. ZOLOFT [Concomitant]
  2. TRILEPTAL [Concomitant]
  3. SEROQUEL XR [Suspect]
     Dosage: OVERDOSE
     Route: 048
     Dates: start: 20110201
  4. NEURONTIN [Concomitant]
  5. CLONIDINE [Concomitant]
  6. SEROQUEL XR [Suspect]
     Route: 048

REACTIONS (2)
  - OVERDOSE [None]
  - COMPLETED SUICIDE [None]
